FAERS Safety Report 6518186-1 (Version None)
Quarter: 2009Q4

REPORT INFORMATION
  Report Type: 
  Country: None (occurrence: None)
  Receive Date: 20091224
  Receipt Date: 20091218
  Transmission Date: 20100525
  Serious: Yes (Hospitalization, Other)
  Sender: FDA-Public Use
  Company Number: US-CVT-090712

PATIENT

DRUGS (18)
  1. RANEXA [Suspect]
     Indication: ANGINA PECTORIS
     Dosage: 1500 MG, TID
     Route: 048
     Dates: start: 20091001, end: 20091020
  2. RANEXA [Suspect]
     Dosage: 1000 MG, BID
     Dates: start: 20080301, end: 20091001
  3. RANEXA [Suspect]
     Dosage: 500 MG, BID
     Dates: start: 20070301, end: 20080301
  4. RENAGEL [Concomitant]
  5. ALLOPURINOL [Concomitant]
     Dosage: 100 MG, QD
  6. IMDUR [Concomitant]
     Dosage: 30 MG, QD
  7. LISINOPRIL                         /00894001/ [Concomitant]
     Dosage: 10 MG, QD
  8. MECLIZINE [Concomitant]
     Dosage: 12.5 MG, BID
  9. TRANSDERM NTG [Concomitant]
  10. PEPCID [Concomitant]
     Dosage: 20 MG, QD
  11. PHOSLO [Concomitant]
     Dosage: 667 MG, TID
  12. PLAVIX [Concomitant]
     Dosage: 75 MG, QD
  13. REGLAN [Concomitant]
     Dosage: 5 MG, QID
  14. TOPROL-XL [Concomitant]
     Dosage: 50 MG, BID
  15. ZOLOFT [Concomitant]
     Dosage: 25 MG, QD
  16. CLONAZEPAM [Concomitant]
     Dosage: 0.5 MG, BID
  17. LEXAPRO [Concomitant]
  18. INSULIN /00030501/ [Concomitant]
     Dosage: 35 UNITS, BID

REACTIONS (9)
  - ATRIAL FIBRILLATION [None]
  - CONFUSIONAL STATE [None]
  - DIZZINESS [None]
  - ELECTROCARDIOGRAM QT PROLONGED [None]
  - GAIT DISTURBANCE [None]
  - NAUSEA [None]
  - OVERDOSE [None]
  - VOMITING [None]
  - WRONG DRUG ADMINISTERED [None]
